FAERS Safety Report 9800634 (Version 1)
Quarter: 2014Q1

REPORT INFORMATION
  Report Type: Spontaneous
  Country: GB (occurrence: GB)
  Receive Date: 20140107
  Receipt Date: 20140107
  Transmission Date: 20141002
  Serious: Yes (Other)
  Sender: FDA-Public Use
  Company Number: GB-ROCHE-1328473

PATIENT
  Age: 56 Year
  Sex: Female
  Weight: 62 kg

DRUGS (4)
  1. ROACTEMRA [Suspect]
     Indication: RHEUMATOID ARTHRITIS
     Route: 042
     Dates: start: 20130613, end: 20130711
  2. AMLODIPINE [Concomitant]
  3. LACRI-LUBE (UNITED KINGDOM) [Concomitant]
  4. MELOXICAM [Concomitant]

REACTIONS (4)
  - Scintillating scotoma [Recovered/Resolved]
  - Headache [Recovered/Resolved]
  - Blood cholesterol increased [Recovered/Resolved]
  - Neutrophil count decreased [Recovered/Resolved]
